FAERS Safety Report 11528924 (Version 1)
Quarter: 2015Q3

REPORT INFORMATION
  Report Type: Spontaneous
  Country: US (occurrence: None)
  Receive Date: 20150918
  Receipt Date: 20150918
  Transmission Date: 20151125
  Serious: Yes (Hospitalization)
  Sender: FDA-Public Use
  Company Number: None

PATIENT
  Age: 77 Year
  Sex: Female
  Weight: 86.18 kg

DRUGS (6)
  1. OMEPRAZOLE. [Concomitant]
     Active Substance: OMEPRAZOLE
  2. LITHIUM. [Suspect]
     Active Substance: LITHIUM
     Indication: AGITATION
     Dosage: 2-3 YEARS
  3. LITHIUM. [Suspect]
     Active Substance: LITHIUM
     Indication: BIPOLAR DISORDER
     Dosage: 2-3 YEARS
  4. MORPHINE [Concomitant]
     Active Substance: MORPHINE
  5. LITHIUM. [Suspect]
     Active Substance: LITHIUM
     Indication: DEPRESSION
     Dosage: 2-3 YEARS
  6. LOMOTIL [Concomitant]
     Active Substance: ATROPINE SULFATE\DIPHENOXYLATE HYDROCHLORIDE

REACTIONS (7)
  - Balance disorder [None]
  - Hepatotoxicity [None]
  - Diabetes insipidus [None]
  - Neuropathy peripheral [None]
  - Bladder disorder [None]
  - Lymphoedema [None]
  - Renal disorder [None]

NARRATIVE: CASE EVENT DATE: 20100601
